FAERS Safety Report 16758949 (Version 1)
Quarter: 2019Q3

REPORT INFORMATION
  Report Type: Spontaneous
  Country: BR (occurrence: BR)
  Receive Date: 20190830
  Receipt Date: 20190830
  Transmission Date: 20191005
  Serious: Yes (Other)
  Sender: FDA-Public Use
  Company Number: BR-GLAXOSMITHKLINE-BR2019AMR156464

PATIENT
  Sex: Female

DRUGS (5)
  1. RELVAR ELLIPTA [Suspect]
     Active Substance: FLUTICASONE FUROATE\VILANTEROL TRIFENATATE
     Indication: INFECTION
  2. ALLEGRA-D [Suspect]
     Active Substance: FEXOFENADINE\PSEUDOEPHEDRINE
     Indication: PRURITUS
  3. ALLEGRA-D [Suspect]
     Active Substance: FEXOFENADINE\PSEUDOEPHEDRINE
     Indication: RASH
  4. RELVAR ELLIPTA [Suspect]
     Active Substance: FLUTICASONE FUROATE\VILANTEROL TRIFENATATE
     Indication: ASTHMA
     Dosage: UNK
     Dates: start: 20190824
  5. AEROLIN [Suspect]
     Active Substance: ALBUTEROL
     Indication: PRODUCT USED FOR UNKNOWN INDICATION
     Dosage: UNK
     Dates: start: 20190825

REACTIONS (16)
  - Pneumonia [Unknown]
  - Cough [Unknown]
  - Headache [Unknown]
  - Wrong technique in product usage process [Unknown]
  - Pruritus [Unknown]
  - Chest pain [Unknown]
  - Dyspnoea [Unknown]
  - Blood prolactin abnormal [Unknown]
  - Fatigue [Unknown]
  - Nasal congestion [Unknown]
  - Rash [Unknown]
  - Respiratory tract infection [Unknown]
  - Insomnia [Unknown]
  - Eye irritation [Unknown]
  - Skin disorder [Unknown]
  - Bronchitis [Unknown]

NARRATIVE: CASE EVENT DATE: 20190825
